APPROVED DRUG PRODUCT: METHERGINE
Active Ingredient: METHYLERGONOVINE MALEATE
Strength: 0.2MG **Federal Register determination that product was not discontinued or withdrawn for safety or effectiveness reasons**
Dosage Form/Route: TABLET;ORAL
Application: N006035 | Product #003
Applicant: EDISON THERAPEUTICS LLC
Approved: Approved Prior to Jan 1, 1982 | RLD: Yes | RS: No | Type: DISCN